FAERS Safety Report 13677251 (Version 1)
Quarter: 2017Q2

REPORT INFORMATION
  Report Type: Spontaneous
  Country: US (occurrence: US)
  Receive Date: 20170622
  Receipt Date: 20170622
  Transmission Date: 20170830
  Serious: No
  Sender: FDA-Public Use
  Company Number: US-MYLANLABS-2017M1026719

PATIENT
  Sex: Female
  Weight: 80 kg

DRUGS (1)
  1. BUDESONIDE CAPSULES [Suspect]
     Active Substance: BUDESONIDE
     Indication: COLITIS
     Dosage: 3 MG, QD
     Route: 048
     Dates: start: 20170303

REACTIONS (2)
  - Diarrhoea [Unknown]
  - Flatulence [Unknown]
